FAERS Safety Report 4325090-6 (Version None)
Quarter: 2004Q1

REPORT INFORMATION
  Report Type: 
  Country: None (occurrence: None)
  Receive Date: 20040323
  Receipt Date: 20040217
  Transmission Date: 20041129
  Serious: No
  Sender: FDA-Public Use
  Company Number: USA040259544

PATIENT
  Age: 58 Year
  Sex: Male

DRUGS (3)
  1. CIALIS [Suspect]
     Dosage: 20 MG
     Dates: start: 20040216
  2. GLIPIZIDE [Concomitant]
  3. MULTIVITAMIN [Concomitant]

REACTIONS (6)
  - DRUG INEFFECTIVE [None]
  - FEELING COLD [None]
  - HEADACHE [None]
  - MUSCULOSKELETAL STIFFNESS [None]
  - MYALGIA [None]
  - THERAPEUTIC RESPONSE DECREASED [None]
